FAERS Safety Report 6383979-0 (Version None)
Quarter: 2009Q3

REPORT INFORMATION
  Report Type: 
  Country: None (occurrence: None)
  Receive Date: 20090928
  Receipt Date: 20090911
  Transmission Date: 20100115
  Serious: Yes (Death, Hospitalization)
  Sender: FDA-Public Use
  Company Number: ACO_00597_2009

PATIENT
  Sex: Male

DRUGS (12)
  1. TIZANIDINE HYDROCHLORIDE [Suspect]
     Indication: DRUG USE FOR UNKNOWN INDICATION
     Dosage: 2 MG
  2. MORPHINE [Suspect]
     Indication: DRUG USE FOR UNKNOWN INDICATION
     Dosage: 240 MG
     Dates: start: 20090523
  3. ZOLPIDEM [Suspect]
     Indication: DRUG USE FOR UNKNOWN INDICATION
     Dosage: 10 MG
     Dates: start: 20090401
  4. OXAZEPAM [Suspect]
     Indication: DRUG USE FOR UNKNOWN INDICATION
     Dosage: 30 MG
  5. PREDNISONE [Concomitant]
  6. BECOZYM [Concomitant]
  7. BENERVA [Concomitant]
  8. EUTHROID-1 [Concomitant]
  9. GABAPENTIN [Concomitant]
  10. LAXOBERON [Concomitant]
  11. FLUIMUCIL [Concomitant]
  12. NEXIUM [Concomitant]

REACTIONS (10)
  - BRONCHOPNEUMONIA [None]
  - ENTEROBACTER PNEUMONIA [None]
  - HYPOXIA [None]
  - LARYNGITIS [None]
  - LUNG INFECTION PSEUDOMONAL [None]
  - MULTIPLE DRUG OVERDOSE [None]
  - PULMONARY EMBOLISM [None]
  - RESPIRATORY DISTRESS [None]
  - RESPIRATORY FAILURE [None]
  - SUPERINFECTION [None]
